FAERS Safety Report 6796394-2 (Version None)
Quarter: 2010Q2

REPORT INFORMATION
  Report Type: 
  Country: None (occurrence: None)
  Receive Date: 20100622
  Receipt Date: 20100608
  Transmission Date: 20101027
  Serious: Yes (Other)
  Sender: FDA-Public Use
  Company Number: 1000011462

PATIENT
  Age: 78 Year
  Sex: Female
  Weight: 54 kg

DRUGS (4)
  1. MEMANTINE HCL [Suspect]
     Indication: DEMENTIA ALZHEIMER'S TYPE
     Dosage: 20 MG (20 MG, 1 IN 1 D), ORAL
     Route: 048
     Dates: start: 20091210, end: 20091230
  2. ARICEPT [Concomitant]
  3. SERESTA [Concomitant]
  4. PROPRANOLOL [Concomitant]

REACTIONS (3)
  - CONFUSIONAL STATE [None]
  - FEAR [None]
  - HALLUCINATION [None]
